FAERS Safety Report 10388201 (Version 2)
Quarter: 2014Q3

REPORT INFORMATION
  Report Type: Spontaneous
  Country: US (occurrence: US)
  Receive Date: 20140815
  Receipt Date: 20140828
  Transmission Date: 20150326
  Serious: No
  Sender: FDA-Public Use
  Company Number: US-PFIZER INC-2014226589

PATIENT
  Sex: Male

DRUGS (1)
  1. GABAPENTIN. [Suspect]
     Active Substance: GABAPENTIN
     Dosage: TWO 400 MG CAPSULES IN THE MORNING AND 400 MG AT NIGHT
     Dates: end: 201405

REACTIONS (1)
  - Drug ineffective [Unknown]
